FAERS Safety Report 9310518 (Version 1)
Quarter: 2013Q2

REPORT INFORMATION
  Report Type: Spontaneous
  Country: US (occurrence: US)
  Receive Date: 20130527
  Receipt Date: 20130527
  Transmission Date: 20140414
  Serious: No
  Sender: FDA-Public Use
  Company Number: US-PFIZER INC-2013159641

PATIENT
  Age: 29 Year
  Sex: Female

DRUGS (1)
  1. XALKORI [Suspect]
     Indication: NEOPLASM
     Dosage: 250 MG, 2X/DAY
     Dates: start: 20120531

REACTIONS (7)
  - Eructation [Unknown]
  - Abdominal discomfort [Unknown]
  - Nausea [Unknown]
  - Vomiting [Unknown]
  - Headache [Unknown]
  - Throat irritation [Unknown]
  - Product quality issue [Unknown]
